FAERS Safety Report 16403792 (Version 1)
Quarter: 2019Q2

REPORT INFORMATION
  Report Type: Spontaneous
  Country: JP (occurrence: JP)
  Receive Date: 20190607
  Receipt Date: 20190607
  Transmission Date: 20190711
  Serious: Yes (Hospitalization, Other)
  Sender: FDA-Public Use
  Company Number: JP-GLAXOSMITHKLINE-JP2019JPN100353

PATIENT
  Age: 85 Year
  Sex: Female

DRUGS (1)
  1. VALTREX [Suspect]
     Active Substance: VALACYCLOVIR HYDROCHLORIDE
     Indication: HERPES ZOSTER
     Dosage: UNK
     Route: 048

REACTIONS (7)
  - Altered state of consciousness [Recovering/Resolving]
  - Toxic encephalopathy [Unknown]
  - Dyslalia [Unknown]
  - Fall [Unknown]
  - Somnolence [Unknown]
  - Nephropathy toxic [Recovered/Resolved]
  - Gait disturbance [Recovering/Resolving]
